FAERS Safety Report 17051460 (Version 1)
Quarter: 2019Q4

REPORT INFORMATION
  Report Type: Spontaneous
  Country: US (occurrence: US)
  Receive Date: 20191120
  Receipt Date: 20191120
  Transmission Date: 20200122
  Serious: Yes (Other)
  Sender: FDA-Public Use
  Company Number: US-HORIZON-BUP-0066-2019

PATIENT
  Age: 33 Year
  Sex: Male

DRUGS (8)
  1. LEVOTHYROXINE. [Concomitant]
     Active Substance: LEVOTHYROXINE
  2. TRILEPTAL [Concomitant]
     Active Substance: OXCARBAZEPINE
  3. BUPHENYL [Suspect]
     Active Substance: SODIUM PHENYLBUTYRATE
     Indication: ARGINASE DEFICIENCY
     Dosage: 9000MG DAILY (18 500MG TABLETS ORAL DAILY)
     Route: 048
     Dates: start: 20140404
  4. IRON [Concomitant]
     Active Substance: IRON
  5. OXCARBAZEPINE. [Concomitant]
     Active Substance: OXCARBAZEPINE
  6. KEPPRA [Concomitant]
     Active Substance: LEVETIRACETAM
  7. DIVALPROEX [Concomitant]
     Active Substance: DIVALPROEX SODIUM
  8. VITAMIN B12 [Concomitant]
     Active Substance: CYANOCOBALAMIN

REACTIONS (3)
  - Symptom recurrence [Not Recovered/Not Resolved]
  - Therapy cessation [Not Recovered/Not Resolved]
  - Off label use [Not Recovered/Not Resolved]

NARRATIVE: CASE EVENT DATE: 20140404
